FAERS Safety Report 13393339 (Version 4)
Quarter: 2017Q2

REPORT INFORMATION
  Report Type: Spontaneous
  Country: US (occurrence: US)
  Receive Date: 20170331
  Receipt Date: 20170517
  Transmission Date: 20170830
  Serious: Yes (Life-Threatening, Hospitalization, Other)
  Sender: FDA-Public Use
  Company Number: US-PFIZER INC-2017138395

PATIENT
  Age: 40 Year
  Sex: Female

DRUGS (1)
  1. BLEOMYCIN SULFATE [Suspect]
     Active Substance: BLEOMYCIN SULFATE
     Indication: NON-HODGKIN^S LYMPHOMA
     Dosage: UNK

REACTIONS (5)
  - Respiratory failure [Unknown]
  - Haemorrhage [Recovering/Resolving]
  - Pulmonary toxicity [Recovering/Resolving]
  - Pneumonia [Unknown]
  - Acute respiratory distress syndrome [Unknown]
